FAERS Safety Report 12554735 (Version 3)
Quarter: 2017Q2

REPORT INFORMATION
  Report Type: Spontaneous
  Country: US (occurrence: US)
  Receive Date: 20160713
  Receipt Date: 20170517
  Transmission Date: 20170830
  Serious: Yes (Hospitalization, Other)
  Sender: FDA-Public Use
  Company Number: US-CELGENEUS-USA-2016072193

PATIENT
  Age: 69 Year
  Sex: Male
  Weight: 86.26 kg

DRUGS (1)
  1. REVLIMID [Suspect]
     Active Substance: LENALIDOMIDE
     Indication: PLASMA CELL MYELOMA
     Dosage: 25 MILLIGRAM
     Route: 048
     Dates: start: 201606, end: 201607

REACTIONS (6)
  - Platelet count decreased [Unknown]
  - Cardiac failure congestive [Recovered/Resolved with Sequelae]
  - Rash [Unknown]
  - Atrial fibrillation [Recovered/Resolved with Sequelae]
  - Hypersensitivity [Unknown]
  - Insomnia [Unknown]

NARRATIVE: CASE EVENT DATE: 2016
